FAERS Safety Report 7213023-4 (Version None)
Quarter: 2011Q1

REPORT INFORMATION
  Report Type: 
  Country: None (occurrence: None)
  Receive Date: 20110106
  Receipt Date: 20101230
  Transmission Date: 20110831
  Serious: Yes (Other)
  Sender: FDA-Public Use
  Company Number: B0675190A

PATIENT
  Sex: Female

DRUGS (4)
  1. SUMATRIPTAN SUCCINATE [Suspect]
     Indication: MIGRAINE
     Dosage: 20MG PER DAY
     Route: 045
  2. KETESSE [Concomitant]
     Indication: MIGRAINE
     Route: 048
     Dates: start: 20090101
  3. NORVASC [Concomitant]
     Indication: HYPERTENSION
     Route: 048
     Dates: start: 20090812
  4. RIZATRIPTAN BENZOATE [Concomitant]

REACTIONS (2)
  - PARESIS CRANIAL NERVE [None]
  - DIPLOPIA [None]
